FAERS Safety Report 4457566-5 (Version None)
Quarter: 2004Q3

REPORT INFORMATION
  Report Type: 
  Country: None (occurrence: None)
  Receive Date: 20040922
  Receipt Date: 20040909
  Transmission Date: 20050211
  Serious: Yes (Other)
  Sender: FDA-Public Use
  Company Number: 2004064476

PATIENT
  Age: 57 Year
  Sex: Male
  Weight: 83.9154 kg

DRUGS (8)
  1. NICOTROL [Suspect]
     Indication: SMOKING CESSATION THERAPY
     Dosage: 1-2 CARTRIDGES PRN CRAVINGS, INHALATION
     Route: 055
     Dates: start: 20040630
  2. NICOTINE [Suspect]
     Indication: SMOKING CESSATION THERAPY
     Dosage: TRANSDERMAL
     Route: 062
  3. PANTOPRAZOLE (PANTOPRAZOLE) [Concomitant]
  4. SIMVASTATIN [Concomitant]
  5. DOXAZOSIN MESYLATE [Concomitant]
  6. BUPROPION HYDROCHLORIDE [Concomitant]
  7. PROPACET 100 [Concomitant]
  8. METAXALONE [Concomitant]

REACTIONS (1)
  - LUNG OPERATION [None]
